FAERS Safety Report 6373186-X (Version None)
Quarter: 2009Q3

REPORT INFORMATION
  Report Type: 
  Country: None (occurrence: None)
  Receive Date: 20090924
  Receipt Date: 20090204
  Transmission Date: 20100115
  Serious: Yes (Other)
  Sender: FDA-Public Use
  Company Number: US-ASTRAZENECA-2009UW00655

PATIENT
  Age: 49 Year
  Sex: Male
  Weight: 102.5 kg

DRUGS (5)
  1. SEROQUEL [Suspect]
     Indication: SLEEP DISORDER
     Route: 048
     Dates: start: 19990101
  2. ZOLOFT [Concomitant]
  3. PRAMIPEXOLE [Concomitant]
  4. STELAZINE [Concomitant]
     Dates: start: 19990101
  5. THORAZINE [Concomitant]
     Dates: start: 19900101

REACTIONS (5)
  - DIABETES MELLITUS [None]
  - KETOACIDOSIS [None]
  - PANCREATITIS [None]
  - RESTLESS LEGS SYNDROME [None]
  - SLEEP APNOEA SYNDROME [None]
